FAERS Safety Report 4676875-8 (Version None)
Quarter: 2005Q2

REPORT INFORMATION
  Report Type: 
  Country: None (occurrence: None)
  Receive Date: 20050527
  Receipt Date: 20050519
  Transmission Date: 20051028
  Serious: Yes (Hospitalization, Other)
  Sender: FDA-Public Use
  Company Number: 2005056879

PATIENT
  Age: 78 Year
  Sex: Female
  Weight: 66.6788 kg

DRUGS (4)
  1. LIPITOR [Suspect]
     Indication: BLOOD CHOLESTEROL INCREASED
     Dosage: 40 MG (40 MG, 1 IN 1 D), ORAL
     Route: 048
     Dates: start: 19980801
  2. PROCRIT [Suspect]
     Indication: ANAEMIA
  3. PLAVIX [Suspect]
     Indication: TRANSIENT ISCHAEMIC ATTACK
     Dosage: ORAL
     Route: 048
     Dates: start: 20040101
  4. HUMULIN 70/30 [Concomitant]

REACTIONS (8)
  - ADRENAL CORTEX DYSPLASIA [None]
  - ANAEMIA [None]
  - CAROTID ARTERY OCCLUSION [None]
  - CONSTIPATION [None]
  - CORONARY ARTERY SURGERY [None]
  - RETINAL HAEMORRHAGE [None]
  - RETINOPATHY [None]
  - TRANSIENT ISCHAEMIC ATTACK [None]
